FAERS Safety Report 23240916 (Version 2)
Quarter: 2023Q4

REPORT INFORMATION
  Report Type: Spontaneous
  Country: US (occurrence: US)
  Receive Date: 20231129
  Receipt Date: 20231204
  Transmission Date: 20240109
  Serious: No
  Sender: FDA-Public Use
  Company Number: US-SA-SAC20231122000269

PATIENT
  Sex: Female

DRUGS (5)
  1. DUPIXENT [Suspect]
     Active Substance: DUPILUMAB
     Indication: Dermatitis atopic
     Dosage: 300 MG, QOW
     Route: 058
  2. DUPIXENT [Suspect]
     Active Substance: DUPILUMAB
     Indication: Dermatitis allergic
  3. ESCITALOPRAM [Concomitant]
     Active Substance: ESCITALOPRAM OXALATE
     Dosage: UNK
  4. RIZATRIPTAN [Concomitant]
     Active Substance: RIZATRIPTAN
     Dosage: UNK
  5. TOPAMAX [Concomitant]
     Active Substance: TOPIRAMATE
     Dosage: UNK

REACTIONS (3)
  - Toothache [Not Recovered/Not Resolved]
  - Rash [Not Recovered/Not Resolved]
  - Arthralgia [Not Recovered/Not Resolved]
